FAERS Safety Report 8217282-0 (Version None)
Quarter: 2012Q1

REPORT INFORMATION
  Report Type: 
  Country: None (occurrence: None)
  Receive Date: 20120319
  Receipt Date: 20120313
  Transmission Date: 20120608
  Serious: No
  Sender: FDA-Public Use
  Company Number: US-PFIZER INC-2012066965

PATIENT
  Age: 65 Year
  Sex: Female

DRUGS (11)
  1. ERGOCALCIFEROL [Concomitant]
     Dosage: UNK
  2. DIPHENHYDRAMINE HYDROCHLORIDE [Concomitant]
     Indication: HYPERSENSITIVITY
     Dosage: UNK
  3. SALMON OIL [Concomitant]
     Dosage: UNK
  4. MEFENAMIC ACID [Concomitant]
     Indication: PAIN
     Dosage: UNK
  5. HUMIRA [Suspect]
     Indication: ANKYLOSING SPONDYLITIS
     Dosage: 40 MG, 1 IN 15 D
     Dates: start: 20111013, end: 20120101
  6. ZOLPIDEM TARTRATE [Concomitant]
     Indication: SLEEP DISORDER
     Dosage: UNK
  7. LORATADINE [Concomitant]
     Indication: HYPERSENSITIVITY
     Dosage: UNK
  8. CALCIUM [Concomitant]
     Indication: SUPPLEMENTATION THERAPY
     Dosage: UNK
  9. HUMIRA [Suspect]
     Dosage: 40 MG, 1 IN 3 WK
     Dates: start: 20120101
  10. EFFEXOR [Suspect]
     Indication: ANXIETY
     Dosage: UNK
     Dates: start: 20120101
  11. ESTRADIOL [Concomitant]
     Indication: HORMONE REPLACEMENT THERAPY
     Dosage: 0.5 MG, UNK

REACTIONS (17)
  - INJECTION SITE WARMTH [None]
  - LACRIMATION INCREASED [None]
  - INJECTION SITE INDURATION [None]
  - INJECTION SITE PAPULE [None]
  - INJECTION SITE ERYTHEMA [None]
  - INJECTION SITE SWELLING [None]
  - SEASONAL ALLERGY [None]
  - ABNORMAL SENSATION IN EYE [None]
  - ANXIETY [None]
  - MOOD ALTERED [None]
  - DEPRESSION [None]
  - HEADACHE [None]
  - THERAPY REGIMEN CHANGED [None]
  - INJECTION SITE PRURITUS [None]
  - EYE PAIN [None]
  - RHINORRHOEA [None]
  - FATIGUE [None]
